FAERS Safety Report 4769785-9 (Version None)
Quarter: 2005Q3

REPORT INFORMATION
  Report Type: 
  Country: None (occurrence: None)
  Receive Date: 20050913
  Receipt Date: 20050905
  Transmission Date: 20060218
  Serious: Yes (Other)
  Sender: FDA-Public Use
  Company Number: 2005114668

PATIENT
  Age: 46 Year
  Sex: Female
  Weight: 59 kg

DRUGS (11)
  1. SOMAVERT [Suspect]
     Indication: ACROMEGALY
     Dosage: SEE IMAGE
     Dates: start: 20050101, end: 20050802
  2. SOMAVERT [Suspect]
     Indication: ACROMEGALY
     Dosage: SEE IMAGE
     Dates: start: 20020805
  3. SOMAVERT [Suspect]
     Indication: ACROMEGALY
     Dosage: SEE IMAGE
     Dates: start: 20050101
  4. IBUPROFEN [Concomitant]
  5. OMEPRAZOLE [Concomitant]
  6. NOCTAMID (LORMETAZEPAM) [Concomitant]
  7. LORAZEPAM [Concomitant]
  8. LEXATIN (BROMAEPAM) [Concomitant]
  9. MESALAMINE [Concomitant]
  10. RAMIPRIL [Concomitant]
  11. BESITRAN (BESITRAN) [Concomitant]

REACTIONS (14)
  - ANAEMIA [None]
  - ASTHENIA [None]
  - BLOOD CALCIUM INCREASED [None]
  - DEPRESSION [None]
  - DRUG ADMINISTRATION ERROR [None]
  - FAT TISSUE INCREASED [None]
  - FATIGUE [None]
  - HYPERPARATHYROIDISM PRIMARY [None]
  - INJECTION SITE CYST [None]
  - INJECTION SITE HAEMORRHAGE [None]
  - INJECTION SITE IRRITATION [None]
  - MALAISE [None]
  - MULTIPLE ENDOCRINE ADENOMATOSIS TYPE I [None]
  - SOMNOLENCE [None]
